FAERS Safety Report 22621790 (Version 3)
Quarter: 2023Q2

REPORT INFORMATION
  Report Type: Spontaneous
  Country: US (occurrence: US)
  Receive Date: 20230620
  Receipt Date: 20230629
  Transmission Date: 20230721
  Serious: Yes (Other)
  Sender: FDA-Public Use
  Company Number: US-ORGANON-O2306USA002252

PATIENT
  Age: 36 Year
  Sex: Female
  Weight: 72.562 kg

DRUGS (3)
  1. NEXPLANON [Suspect]
     Active Substance: ETONOGESTREL
     Indication: Contraception
     Dosage: 1 IMPLANT ONE EVERY THREE YEARS IN LEFT ARM
     Route: 059
     Dates: start: 20230606, end: 20230614
  2. LEVONORGESTREL AND ETHINYL ESTRADIOL [Concomitant]
     Active Substance: ETHINYL ESTRADIOL\LEVONORGESTREL
     Dosage: 1 TABLET EVERY DAY; 0.15 MG/30 MCG, PACK OF 91 FOR 3 MONTHS
     Route: 048
     Dates: start: 20221201
  3. METRONIDAZOLE [Concomitant]
     Active Substance: METRONIDAZOLE
     Dosage: INSERT 1 APPLICATORFUL EVERY DAY AT BEDTIME 5 DAYS
     Route: 067
     Dates: start: 20221208

REACTIONS (3)
  - Device expulsion [Recovered/Resolved]
  - Implant site infection [Recovering/Resolving]
  - Implant site pain [Recovering/Resolving]

NARRATIVE: CASE EVENT DATE: 20230601
